FAERS Safety Report 9398086 (Version 1)
Quarter: 2013Q3

REPORT INFORMATION
  Report Type: Spontaneous
  Country: US (occurrence: US)
  Receive Date: 20130712
  Receipt Date: 20130712
  Transmission Date: 20140515
  Serious: No
  Sender: FDA-Public Use
  Company Number: US-GLAXOSMITHKLINE-A0980979A

PATIENT
  Sex: Male

DRUGS (4)
  1. FLOVENT [Suspect]
     Indication: LUNG DISORDER
  2. VENTOLIN [Suspect]
     Indication: LUNG DISORDER
  3. LISINOPRIL [Concomitant]
  4. HYTRIN [Concomitant]

REACTIONS (1)
  - Dysuria [Unknown]
